FAERS Safety Report 13675742 (Version 1)
Quarter: 2017Q2

REPORT INFORMATION
  Report Type: Report from Study
  Country: CA (occurrence: CA)
  Receive Date: 20170621
  Receipt Date: 20170621
  Transmission Date: 20170830
  Serious: Yes (Other)
  Sender: FDA-Public Use
  Company Number: CA-GILEAD-2017-0278874

PATIENT
  Age: 46 Year
  Sex: Female

DRUGS (1)
  1. SOFOSBUVIR W/VELPATASVIR [Suspect]
     Active Substance: SOFOSBUVIR\VELPATASVIR
     Indication: CHRONIC HEPATITIS C
     Dosage: 1 DF, UNK
     Route: 048
     Dates: start: 20170316

REACTIONS (6)
  - Somnambulism [Unknown]
  - Skin lesion [Unknown]
  - Loss of consciousness [Recovered/Resolved]
  - Anxiety [Not Recovered/Not Resolved]
  - Suicidal ideation [Unknown]
  - Oral herpes [Unknown]
